FAERS Safety Report 14503262 (Version 3)
Quarter: 2018Q1

REPORT INFORMATION
  Report Type: Spontaneous
  Country: ES (occurrence: ES)
  Receive Date: 20180208
  Receipt Date: 20180306
  Transmission Date: 20180509
  Serious: Yes (Life-Threatening, Hospitalization, Other)
  Sender: FDA-Public Use
  Company Number: ES-ELI_LILLY_AND_COMPANY-ES201802002070

PATIENT
  Age: 24 Year
  Sex: Female

DRUGS (4)
  1. TOPIRAMATE. [Suspect]
     Active Substance: TOPIRAMATE
     Indication: PERSONALITY DISORDER
     Dosage: UNK UNK, UNKNOWN
     Route: 065
  2. QUETIAPINE. [Suspect]
     Active Substance: QUETIAPINE
     Indication: PERSONALITY DISORDER
     Dosage: UNK UNK, UNKNOWN
     Route: 065
  3. CLORAZEPATE [Suspect]
     Active Substance: CLORAZEPATE DIPOTASSIUM
     Indication: PERSONALITY DISORDER
     Dosage: UNK UNK, UNKNOWN
     Route: 065
  4. DULOXETINE HYDROCHLORIDE. [Suspect]
     Active Substance: DULOXETINE HYDROCHLORIDE
     Indication: PERSONALITY DISORDER
     Dosage: UNK UNK, UNKNOWN
     Route: 065

REACTIONS (5)
  - Intentional overdose [Recovered/Resolved]
  - Off label use [Unknown]
  - Blood creatine phosphokinase increased [Unknown]
  - Loss of consciousness [Recovered/Resolved]
  - Coma blister [Recovered/Resolved]
